FAERS Safety Report 11518201 (Version 5)
Quarter: 2015Q4

REPORT INFORMATION
  Report Type: Report from Study
  Country: US (occurrence: US)
  Receive Date: 20150917
  Receipt Date: 20151216
  Transmission Date: 20160304
  Serious: Yes (Other)
  Sender: FDA-Public Use
  Company Number: US-BAYER-2015-419248

PATIENT
  Age: 75 Year
  Sex: Male

DRUGS (1)
  1. NEXAVAR [Suspect]
     Active Substance: SORAFENIB
     Indication: HEPATOCELLULAR CARCINOMA
     Dosage: 400 MG, BID
     Route: 048
     Dates: start: 20150831

REACTIONS (16)
  - Faeces discoloured [None]
  - Nausea [Not Recovered/Not Resolved]
  - Skin exfoliation [None]
  - Abdominal distension [None]
  - Skin exfoliation [None]
  - Flatulence [None]
  - Weight decreased [Not Recovered/Not Resolved]
  - Flushing [None]
  - Buccal mucosal roughening [None]
  - Mucous stools [None]
  - Fatigue [None]
  - Diarrhoea [None]
  - Oral pain [None]
  - Ascites [None]
  - Abdominal distension [None]
  - Faeces discoloured [None]

NARRATIVE: CASE EVENT DATE: 201509
